FAERS Safety Report 16220131 (Version 1)
Quarter: 2019Q2

REPORT INFORMATION
  Report Type: Spontaneous
  Country: US (occurrence: US)
  Receive Date: 20190420
  Receipt Date: 20190420
  Transmission Date: 20190711
  Serious: Yes (Death)
  Sender: FDA-Public Use
  Company Number: US-JNJFOC-20190412080

PATIENT
  Sex: Female

DRUGS (1)
  1. XARELTO [Suspect]
     Active Substance: RIVAROXABAN
     Indication: BLOOD SODIUM DECREASED
     Route: 048
     Dates: start: 20190213, end: 20190219

REACTIONS (4)
  - Off label use [Unknown]
  - Gastrointestinal haemorrhage [Fatal]
  - Product use in unapproved indication [Unknown]
  - Rectal haemorrhage [Fatal]

NARRATIVE: CASE EVENT DATE: 20190213
